FAERS Safety Report 4311949-2 (Version None)
Quarter: 2004Q1

REPORT INFORMATION
  Report Type: 
  Country: None (occurrence: None)
  Receive Date: 20040303
  Receipt Date: 20040223
  Transmission Date: 20041129
  Serious: Yes (Hospitalization)
  Sender: FDA-Public Use
  Company Number: DE-JNJFOC-20040205464

PATIENT
  Age: 50 Year
  Sex: Male

DRUGS (1)
  1. HALDOL [Suspect]
     Dosage: 10 MG, 2 IN 1 DAY, ORAL
     Route: 048

REACTIONS (4)
  - BLOOD CREATINE PHOSPHOKINASE INCREASED [None]
  - CONVULSION [None]
  - POSTICTAL STATE [None]
  - RHABDOMYOLYSIS [None]
